FAERS Safety Report 5904739-8 (Version None)
Quarter: 2008Q4

REPORT INFORMATION
  Report Type: 
  Country: None (occurrence: None)
  Receive Date: 20081001
  Receipt Date: 20080919
  Transmission Date: 20090506
  Serious: Yes (Death)
  Sender: FDA-Public Use
  Company Number: US-JNJFOC-20080706331

PATIENT
  Sex: Male
  Weight: 8.16 kg

DRUGS (1)
  1. CHILDREN TYLENOL PLUS MULTI SYMPTOM COLD [Suspect]
     Indication: NASOPHARYNGITIS

REACTIONS (7)
  - BLOOD CHLORIDE INCREASED [None]
  - BLOOD GLUCOSE DECREASED [None]
  - BLOOD POTASSIUM INCREASED [None]
  - DRUG TOXICITY [None]
  - PULMONARY OEDEMA [None]
  - SEBORRHOEA [None]
  - SUDDEN INFANT DEATH SYNDROME [None]
